FAERS Safety Report 20166267 (Version 1)
Quarter: 2021Q4

REPORT INFORMATION
  Report Type: Spontaneous
  Country: AR (occurrence: AR)
  Receive Date: 20211209
  Receipt Date: 20211209
  Transmission Date: 20220303
  Serious: No
  Sender: FDA-Public Use
  Company Number: AR-PFIZER INC-2021104846

PATIENT
  Age: 3 Year
  Sex: Female

DRUGS (1)
  1. GENOTROPIN [Suspect]
     Active Substance: SOMATROPIN
     Indication: Growth hormone deficiency
     Dosage: 0.1 TO 0.5 MG, DAILY (7 TIMES PER WEEK)
     Dates: start: 20200725

REACTIONS (4)
  - Wrong technique in device usage process [Unknown]
  - Device mechanical issue [Unknown]
  - Poor quality device used [Unknown]
  - Device occlusion [Unknown]

NARRATIVE: CASE EVENT DATE: 20210101
